FAERS Safety Report 21651940 (Version 1)
Quarter: 2022Q4

REPORT INFORMATION
  Report Type: Spontaneous
  Country: US (occurrence: None)
  Receive Date: 20221123
  Receipt Date: 20221123
  Transmission Date: 20230113
  Serious: No
  Sender: FDA-Public Use
  Company Number: None

PATIENT
  Age: 57 Year
  Sex: Female

DRUGS (1)
  1. HUMIRA [Suspect]
     Active Substance: ADALIMUMAB
     Indication: Ankylosing spondylitis
     Route: 058
     Dates: start: 202209

REACTIONS (5)
  - Renal disorder [None]
  - Tendon pain [None]
  - Ligament pain [None]
  - Myalgia [None]
  - Incorrect dose administered [None]

NARRATIVE: CASE EVENT DATE: 20221123
